FAERS Safety Report 6923667-2 (Version None)
Quarter: 2010Q3

REPORT INFORMATION
  Report Type: 
  Country: None (occurrence: None)
  Receive Date: 20100813
  Receipt Date: 20100803
  Transmission Date: 20110219
  Serious: Yes (Hospitalization, Disabling)
  Sender: FDA-Public Use
  Company Number: B0662376A

PATIENT
  Sex: Female

DRUGS (17)
  1. SERETIDE [Suspect]
     Indication: ASTHMA
     Dosage: 1000MCG PER DAY
     Route: 055
     Dates: start: 20080709
  2. ZYLORIC [Suspect]
     Indication: PRODUCT USED FOR UNKNOWN INDICATION
     Dosage: 50MG PER DAY
     Route: 048
     Dates: start: 20090121, end: 20090316
  3. IMURAN [Suspect]
     Indication: PRODUCT USED FOR UNKNOWN INDICATION
     Dosage: 50MG PER DAY
     Route: 048
     Dates: start: 20081010, end: 20081024
  4. IMURAN [Suspect]
     Dosage: 75MG PER DAY
     Route: 048
     Dates: start: 20081025, end: 20090316
  5. IMURAN [Suspect]
     Dosage: 75MG PER DAY
     Route: 048
     Dates: start: 20090325, end: 20090515
  6. SINGULAIR [Suspect]
     Indication: ASTHMA
     Dosage: 10MG PER DAY
     Route: 048
  7. CELESTAMINE TAB [Concomitant]
     Indication: ASTHMA
     Dosage: 2IUAX PER DAY
     Route: 048
     Dates: end: 20081002
  8. THEOLONG [Concomitant]
     Indication: ASTHMA
     Dosage: 400MG PER DAY
     Route: 048
  9. LIPITOR [Concomitant]
     Route: 048
  10. BONALON [Concomitant]
     Route: 048
     Dates: start: 20081027
  11. SOLU-MEDROL [Concomitant]
     Dosage: 1G PER DAY
     Route: 042
     Dates: start: 20081002, end: 20081004
  12. PREDONINE [Concomitant]
     Dosage: 50MG PER DAY
     Route: 048
     Dates: start: 20081005, end: 20081029
  13. PREDONINE [Concomitant]
     Dosage: 45MG PER DAY
     Route: 048
     Dates: start: 20081030, end: 20081030
  14. PREDONINE [Concomitant]
     Dosage: 20MG PER DAY
     Route: 048
     Dates: end: 20090217
  15. PREDONINE [Concomitant]
     Dosage: 15MG PER DAY
     Route: 048
     Dates: start: 20090218
  16. TAKEPRON [Concomitant]
     Dosage: 15MG PER DAY
     Route: 048
     Dates: start: 20090319
  17. DIFLUCAN [Concomitant]
     Dosage: 400MG PER DAY
     Route: 048
     Dates: start: 20090604

REACTIONS (5)
  - ALLERGIC GRANULOMATOUS ANGIITIS [None]
  - ANAEMIA [None]
  - DRUG INTERACTION [None]
  - LEUKOPENIA [None]
  - MENINGITIS CRYPTOCOCCAL [None]
